FAERS Safety Report 8385652-6 (Version None)
Quarter: 2012Q2

REPORT INFORMATION
  Report Type: 
  Country: None (occurrence: None)
  Receive Date: 20120523
  Receipt Date: 20120523
  Transmission Date: 20120825
  Serious: No
  Sender: FDA-Public Use
  Company Number: None

PATIENT

DRUGS (1)
  1. AMBIEN [Suspect]
     Indication: SLEEP DISORDER THERAPY

REACTIONS (5)
  - DRUG INEFFECTIVE [None]
  - INITIAL INSOMNIA [None]
  - PRODUCT SUBSTITUTION ISSUE [None]
  - UPPER RESPIRATORY TRACT INFECTION [None]
  - PRODUCT QUALITY ISSUE [None]
